FAERS Safety Report 24180838 (Version 2)
Quarter: 2024Q3

REPORT INFORMATION
  Report Type: Spontaneous
  Country: TR (occurrence: TR)
  Receive Date: 20240806
  Receipt Date: 20240808
  Transmission Date: 20241017
  Serious: Yes (Other)
  Sender: NOVARTIS
  Company Number: CN-002147023-NVSC2024TR159901

PATIENT
  Age: 52 Year

DRUGS (9)
  1. DESFERAL [Suspect]
     Active Substance: DEFEROXAMINE MESYLATE
     Indication: Product used for unknown indication
     Dosage: 0.5 MG (1X1)
     Route: 065
  2. VORICONAZOLE [Concomitant]
     Active Substance: VORICONAZOLE
     Indication: Acute myeloid leukaemia
     Dosage: 2X200 MG STANDARD DOSING
     Route: 065
  3. DUPHALAC [Concomitant]
     Active Substance: LACTULOSE
     Indication: Product used for unknown indication
     Dosage: 670 MG (1X3)
     Route: 065
  4. AKLOVIR [Concomitant]
     Indication: Product used for unknown indication
     Dosage: 200 MG (2X1)
     Route: 065
  5. SUCRALFATE [Concomitant]
     Active Substance: SUCRALFATE
     Indication: Product used for unknown indication
     Dosage: UNK (4X1)
     Route: 065
  6. FILGRASTIM [Concomitant]
     Active Substance: FILGRASTIM
     Indication: Product used for unknown indication
     Dosage: 45 MIU (1X1)
     Route: 065
  7. NEVOFAM [Concomitant]
     Indication: Product used for unknown indication
     Dosage: 20 MG (2X1)
     Route: 065
  8. METHYLPREDNISOLONE [Concomitant]
     Active Substance: METHYLPREDNISOLONE
     Indication: Product used for unknown indication
     Dosage: 250 MG (1X1)
     Route: 065
  9. ALLOPURINOL [Concomitant]
     Active Substance: ALLOPURINOL
     Indication: Product used for unknown indication
     Dosage: UNK (1X1)
     Route: 065

REACTIONS (2)
  - Hallucination [Unknown]
  - Nightmare [Unknown]
